FAERS Safety Report 8587948-1 (Version None)
Quarter: 2012Q3

REPORT INFORMATION
  Report Type: 
  Country: None (occurrence: None)
  Receive Date: 20120813
  Receipt Date: 20120801
  Transmission Date: 20120928
  Serious: No
  Sender: FDA-Public Use
  Company Number: US-BIOGENIDEC-2012BI014619

PATIENT
  Sex: Female

DRUGS (1)
  1. AVONEX [Suspect]
     Indication: MULTIPLE SCLEROSIS
     Route: 030
     Dates: start: 20120220

REACTIONS (8)
  - HYPOAESTHESIA ORAL [None]
  - FEAR [None]
  - NEEDLE ISSUE [None]
  - INFLUENZA LIKE ILLNESS [None]
  - EYE PAIN [None]
  - MUSCULAR WEAKNESS [None]
  - ASTHENIA [None]
  - HYPOAESTHESIA [None]
